FAERS Safety Report 14766268 (Version 1)
Quarter: 2018Q2

REPORT INFORMATION
  Report Type: Spontaneous
  Country: US (occurrence: US)
  Receive Date: 20180416
  Receipt Date: 20180416
  Transmission Date: 20180711
  Serious: Yes (Hospitalization, Other)
  Sender: FDA-Public Use
  Company Number: US-ASTELLAS-2017US035430

PATIENT
  Age: 59 Year
  Sex: Male

DRUGS (5)
  1. PREDNISONE. [Suspect]
     Active Substance: PREDNISONE
     Indication: ACUTE GRAFT VERSUS HOST DISEASE
     Route: 048
     Dates: start: 20170603
  2. RUXOLITINIB [Suspect]
     Active Substance: RUXOLITINIB
     Route: 048
     Dates: start: 2017
  3. RUXOLITINIB [Suspect]
     Active Substance: RUXOLITINIB
     Indication: GRAFT VERSUS HOST DISEASE
     Route: 048
     Dates: start: 20170617
  4. TACROLIMUS. [Suspect]
     Active Substance: TACROLIMUS
     Indication: PRODUCT USED FOR UNKNOWN INDICATION
     Dosage: UNK UNK, UNKNOWN FREQ.
     Route: 065
  5. PREDNISONE. [Suspect]
     Active Substance: PREDNISONE
     Dosage: 80 MG IN MORNING AND 15 MG IN EVENING, UNKNOWN FREQ.
     Route: 065
     Dates: start: 20170708

REACTIONS (3)
  - Mental status changes [Recovered/Resolved]
  - BK virus infection [Unknown]
  - Mental status changes [Recovered/Resolved]

NARRATIVE: CASE EVENT DATE: 20170705
